FAERS Safety Report 7282591-9 (Version None)
Quarter: 2011Q1

REPORT INFORMATION
  Report Type: 
  Country: None (occurrence: None)
  Receive Date: 20110209
  Receipt Date: 20110203
  Transmission Date: 20110831
  Serious: No
  Sender: FDA-Public Use
  Company Number: US-PFIZER INC-2011025468

PATIENT
  Sex: Male
  Weight: 83.9 kg

DRUGS (4)
  1. ACETYLSALICYLIC ACID [Concomitant]
     Dosage: UNK
  2. PRAVACHOL [Concomitant]
     Indication: BLOOD CHOLESTEROL INCREASED
     Dosage: 40 MG, UNK
  3. DETROL LA [Suspect]
     Indication: POLLAKIURIA
     Dosage: 4 MG, DAILY
     Route: 048
     Dates: start: 20110114
  4. TAMSULOSIN [Concomitant]
     Indication: POLLAKIURIA
     Dosage: UNK

REACTIONS (1)
  - DRY MOUTH [None]
